FAERS Safety Report 18616513 (Version 5)
Quarter: 2021Q2

REPORT INFORMATION
  Report Type: Spontaneous
  Country: US (occurrence: US)
  Receive Date: 20201215
  Receipt Date: 20210601
  Transmission Date: 20210717
  Serious: Yes (Hospitalization, Disabling)
  Sender: FDA-Public Use
  Company Number: US-GLOBAL BLOOD THERAPEUTICS INC-US-GBT-20-03518

PATIENT
  Age: 80 Year
  Sex: Male

DRUGS (4)
  1. OXBRYTA [Suspect]
     Active Substance: VOXELOTOR
     Indication: SICKLE CELL DISEASE
     Route: 048
     Dates: start: 20201021, end: 202010
  2. OXBRYTA [Suspect]
     Active Substance: VOXELOTOR
     Route: 048
     Dates: start: 202010, end: 2020
  3. OXBRYTA [Suspect]
     Active Substance: VOXELOTOR
     Dosage: 2 TABLETS EVERY OTHER DAY
     Route: 048
     Dates: end: 2021
  4. OXBRYTA [Suspect]
     Active Substance: VOXELOTOR
     Dosage: 1 TABLET ONCE DAILY ALTERNATING WITH 2 TABLETS ONCE DAILY
     Route: 048
     Dates: start: 2021

REACTIONS (6)
  - Diarrhoea [Recovered/Resolved]
  - Cardiac disorder [Unknown]
  - Asthenia [Not Recovered/Not Resolved]
  - Weight decreased [Unknown]
  - Disability [Not Recovered/Not Resolved]
  - Treatment noncompliance [Unknown]

NARRATIVE: CASE EVENT DATE: 2020
